FAERS Safety Report 22671729 (Version 3)
Quarter: 2024Q1

REPORT INFORMATION
  Report Type: Spontaneous
  Country: JP (occurrence: JP)
  Receive Date: 20230705
  Receipt Date: 20240307
  Transmission Date: 20240410
  Serious: Yes (Death, Other)
  Sender: FDA-Public Use
  Company Number: JP-BRISTOL-MYERS SQUIBB COMPANY-2023-091602

PATIENT

DRUGS (1)
  1. REVLIMID [Suspect]
     Active Substance: LENALIDOMIDE
     Indication: Product used for unknown indication
     Route: 048

REACTIONS (1)
  - Death [Fatal]
